FAERS Safety Report 18236133 (Version 2)
Quarter: 2020Q4

REPORT INFORMATION
  Report Type: Spontaneous
  Country: US (occurrence: US)
  Receive Date: 20200906
  Receipt Date: 20201029
  Transmission Date: 20210113
  Serious: No
  Sender: FDA-Public Use
  Company Number: US-ASTRAZENECA-2020SF08231

PATIENT
  Age: 68 Year
  Sex: Female
  Weight: 61.2 kg

DRUGS (3)
  1. ALBUTEROL. [Concomitant]
     Active Substance: ALBUTEROL
     Indication: CHRONIC OBSTRUCTIVE PULMONARY DISEASE
     Dosage: 2.0PICOGRAM AS REQUIRED
     Route: 055
     Dates: start: 202001
  2. SYMBICORT [Suspect]
     Active Substance: BUDESONIDE\FORMOTEROL FUMARATE DIHYDRATE
     Indication: CHRONIC OBSTRUCTIVE PULMONARY DISEASE
     Dosage: 160-4.5 MCG 2 PUFFS, TWO TIMES A DAY
     Route: 055
     Dates: start: 202002
  3. INCRUSE ELLIPTA [Concomitant]
     Active Substance: UMECLIDINIUM BROMIDE
     Indication: CHRONIC OBSTRUCTIVE PULMONARY DISEASE
     Route: 055
     Dates: start: 202001

REACTIONS (7)
  - Wrong technique in device usage process [Unknown]
  - Product dose omission issue [Unknown]
  - Headache [Unknown]
  - Device delivery system issue [Unknown]
  - Device malfunction [Unknown]
  - Fear [Unknown]
  - Product use issue [Unknown]

NARRATIVE: CASE EVENT DATE: 2020
